FAERS Safety Report 9289095 (Version 1)
Quarter: 2013Q2

REPORT INFORMATION
  Report Type: Spontaneous
  Country: US (occurrence: US)
  Receive Date: 20130514
  Receipt Date: 20130514
  Transmission Date: 20140414
  Serious: No
  Sender: FDA-Public Use
  Company Number: US-OPTIMER PHARMACEUTICALS, INC.-20120027

PATIENT
  Sex: 0

DRUGS (3)
  1. DIFICID [Suspect]
     Indication: PRODUCT USED FOR UNKNOWN INDICATION
     Dosage: UNK
     Route: 065
     Dates: start: 201112
  2. DIFICID [Suspect]
     Dosage: UNK
     Route: 065
     Dates: start: 201201
  3. DIFICID [Suspect]
     Dosage: UNK
     Route: 065
     Dates: start: 201203

REACTIONS (1)
  - Infection [Not Recovered/Not Resolved]
